FAERS Safety Report 6868736-0 (Version None)
Quarter: 2010Q3

REPORT INFORMATION
  Report Type: 
  Country: None (occurrence: None)
  Receive Date: 20100722
  Receipt Date: 20080605
  Transmission Date: 20110219
  Serious: No
  Sender: FDA-Public Use
  Company Number: US-PFIZER INC-2008048758

PATIENT
  Sex: Female
  Weight: 57.727 kg

DRUGS (4)
  1. CHANTIX [Suspect]
     Indication: SMOKING CESSATION THERAPY
     Route: 048
     Dates: start: 20080512
  2. ACTONEL [Concomitant]
  3. TEMAZEPAM [Concomitant]
  4. XOPENEX [Concomitant]

REACTIONS (3)
  - ARTHRALGIA [None]
  - CONSTIPATION [None]
  - MYALGIA [None]
